FAERS Safety Report 8384981-X (Version None)
Quarter: 2012Q2

REPORT INFORMATION
  Report Type: 
  Country: None (occurrence: None)
  Receive Date: 20120524
  Receipt Date: 20120521
  Transmission Date: 20120825
  Serious: Yes (Other)
  Sender: FDA-Public Use
  Company Number: US-ROCHE-1071170

PATIENT
  Sex: Female
  Weight: 63.4 kg

DRUGS (2)
  1. ZELBORAF [Suspect]
     Indication: MALIGNANT MELANOMA
     Route: 048
     Dates: start: 20110916
  2. ZELBORAF [Suspect]
     Dosage: DOSE REDUCED
     Route: 048

REACTIONS (1)
  - ATRIAL FIBRILLATION [None]
